FAERS Safety Report 20725329 (Version 1)
Quarter: 2022Q2

REPORT INFORMATION
  Report Type: Spontaneous
  Country: US (occurrence: None)
  Receive Date: 20220419
  Receipt Date: 20220419
  Transmission Date: 20220720
  Serious: Yes (Hospitalization)
  Sender: FDA-Public Use
  Company Number: None

PATIENT
  Age: 47 Year
  Sex: Male

DRUGS (4)
  1. GLATIRAMER [Suspect]
     Active Substance: GLATIRAMER
     Indication: Multiple sclerosis
     Dosage: INJECT 1 SYRINGE UNDERN THE SKIN (SUBCUTANEOUS INJECTION) 3 TIMES PER WEEK ON THE SAME 3 DAYS EACH W
     Route: 058
     Dates: start: 20200514
  2. KEPPRA TAB 500MG [Concomitant]
  3. VITAMIN B12 DRO 3000/ML [Concomitant]
  4. VITAMIN D CAP 50000UNT [Concomitant]

REACTIONS (3)
  - Fall [None]
  - Seizure [None]
  - Therapy interrupted [None]

NARRATIVE: CASE EVENT DATE: 20220415
